FAERS Safety Report 7530387-2 (Version None)
Quarter: 2011Q2

REPORT INFORMATION
  Report Type: 
  Country: None (occurrence: None)
  Receive Date: 20110607
  Receipt Date: 20110526
  Transmission Date: 20111010
  Serious: Yes (Hospitalization, Other)
  Sender: FDA-Public Use
  Company Number: CN-ELI_LILLY_AND_COMPANY-CN201105008287

PATIENT
  Sex: Female
  Weight: 49 kg

DRUGS (4)
  1. UNSPECIFIED HERBAL [Concomitant]
     Indication: OSTEOPOROSIS
     Dosage: 0.25 G, TID
     Route: 048
     Dates: start: 20100101, end: 20110401
  2. ALFACALCIDOL [Concomitant]
     Indication: OSTEOPOROSIS
     Dosage: 500 NG, QD
     Route: 048
     Dates: start: 20100101, end: 20110401
  3. FOSAMAX [Concomitant]
     Indication: OSTEOPOROSIS
     Dosage: 70 MG, WEEKLY (1/W)
     Route: 065
     Dates: start: 20101201, end: 20110401
  4. EVISTA [Suspect]
     Indication: OSTEOPOROSIS
     Dosage: 60 MG, QD
     Route: 048
     Dates: start: 20101201

REACTIONS (2)
  - HEPATITIS [None]
  - CHOLECYSTITIS [None]
